FAERS Safety Report 8005709-9 (Version None)
Quarter: 2011Q4

REPORT INFORMATION
  Report Type: 
  Country: None (occurrence: None)
  Receive Date: 20111223
  Receipt Date: 20111216
  Transmission Date: 20120403
  Serious: Yes (Hospitalization)
  Sender: FDA-Public Use
  Company Number: PHHY2011FR110803

PATIENT
  Sex: Male
  Weight: 74 kg

DRUGS (11)
  1. FLUOROURACIL [Suspect]
     Dosage: 1 DF, UNK
     Route: 042
     Dates: start: 20110909, end: 20110909
  2. FLUOROURACIL [Suspect]
     Dosage: 1 DF, UNK
     Route: 042
     Dates: start: 20110930, end: 20110930
  3. DOCETAXEL [Suspect]
     Dosage: 140 MG, ONCE EVERY 3 WEEKS
     Route: 042
     Dates: start: 20110909
  4. FLUOROURACIL [Suspect]
     Indication: SQUAMOUS CELL CARCINOMA
     Dosage: 1 DF, UNK
     Route: 042
     Dates: start: 20110819, end: 20110819
  5. CISPLATIN [Suspect]
     Dosage: 1 DF, UNK
     Route: 042
     Dates: start: 20110930, end: 20110930
  6. DOCETAXEL [Suspect]
     Dosage: 140 MG, ONCE EVERY 3 WEEKS
     Route: 042
     Dates: start: 20110930
  7. CISPLATIN [Suspect]
     Dosage: 1 DF, UNK
     Route: 042
     Dates: start: 20110909, end: 20110909
  8. PREDNISOLONE [Concomitant]
  9. DOCETAXEL [Suspect]
     Indication: SQUAMOUS CELL CARCINOMA
     Dosage: 140 MG, ONCE EVERY 3 WEEKS
     Route: 042
     Dates: start: 20110819
  10. CISPLATIN [Suspect]
     Indication: SQUAMOUS CELL CARCINOMA
     Dosage: 1 DF, UNK
     Route: 042
     Dates: start: 20110819, end: 20110819
  11. ZOFRAN [Concomitant]

REACTIONS (3)
  - PALMAR-PLANTAR ERYTHRODYSAESTHESIA SYNDROME [None]
  - SKIN EXFOLIATION [None]
  - FEBRILE BONE MARROW APLASIA [None]
